FAERS Safety Report 4286272-5 (Version None)
Quarter: 2004Q1

REPORT INFORMATION
  Report Type: 
  Country: None (occurrence: None)
  Receive Date: 20040121
  Receipt Date: 20030820
  Transmission Date: 20041129
  Serious: Yes (Other)
  Sender: FDA-Public Use
  Company Number: 345037

PATIENT
  Age: 30 Year
  Sex: Male

DRUGS (1)
  1. TRETINOIN [Suspect]
     Indication: ACUTE PROMYELOCYTIC LEUKAEMIA

REACTIONS (1)
  - BENIGN INTRACRANIAL HYPERTENSION [None]
